FAERS Safety Report 25934907 (Version 1)
Quarter: 2025Q4

REPORT INFORMATION
  Report Type: Spontaneous
  Country: US (occurrence: None)
  Receive Date: 20251017
  Receipt Date: 20251017
  Transmission Date: 20260118
  Serious: Yes (Hospitalization)
  Sender: FDA-CTU
  Company Number: None

PATIENT
  Sex: Male

DRUGS (1)
  1. PROCRIT [Suspect]
     Active Substance: ERYTHROPOIETIN
     Dosage: 1 ML EVERY 2 WEEKS SUBCUTANEOUS
     Route: 058
     Dates: start: 20241217

REACTIONS (2)
  - Haemoglobin decreased [None]
  - Blood iron decreased [None]
